FAERS Safety Report 8819540 (Version 1)
Quarter: 2012Q4

REPORT INFORMATION
  Report Type: 
  Country: BE (occurrence: BE)
  Receive Date: 20120930
  Receipt Date: 20120930
  Transmission Date: 20130627
  Serious: Yes (Other)
  Sender: FDA-Public Use
  Company Number: BE-ELI_LILLY_AND_COMPANY-BE201209005391

PATIENT
  Sex: Female

DRUGS (2)
  1. CYMBALTA [Suspect]
  2. OMEPRAZOL [Concomitant]

REACTIONS (2)
  - Colitis microscopic [Unknown]
  - Diarrhoea [Unknown]
